FAERS Safety Report 7428577-2 (Version None)
Quarter: 2011Q2

REPORT INFORMATION
  Report Type: 
  Country: None (occurrence: None)
  Receive Date: 20110421
  Receipt Date: 20090305
  Transmission Date: 20111010
  Serious: Yes (Death, Other)
  Sender: FDA-Public Use
  Company Number: US-BAYER-200914349NA

PATIENT
  Age: 72 Year
  Sex: Female
  Weight: 63 kg

DRUGS (9)
  1. FOSAMAX [Concomitant]
  2. AMBIEN [Concomitant]
     Dosage: UNK
     Dates: start: 20070117
  3. PROPOX-N [Concomitant]
  4. TRASYLOL [Suspect]
     Indication: CHOLECYSTECTOMY
     Route: 042
     Dates: start: 20070214
  5. CARAFATE [Concomitant]
     Dosage: UNK
     Dates: start: 20070205
  6. APAP TAB [Concomitant]
  7. PROTONIX [Concomitant]
     Dosage: UNK
     Dates: start: 20070117
  8. PREDNISOLONE [Concomitant]
     Dosage: UNK
     Dates: start: 20061114, end: 20070107
  9. CO-TRIMAZOLE [Concomitant]
     Dosage: UNK
     Dates: start: 20070208

REACTIONS (13)
  - INJURY [None]
  - STRESS [None]
  - PAIN [None]
  - FEAR [None]
  - MULTI-ORGAN FAILURE [None]
  - RENAL FAILURE [None]
  - RENAL INJURY [None]
  - UNEVALUABLE EVENT [None]
  - ANHEDONIA [None]
  - DEATH [None]
  - EMOTIONAL DISTRESS [None]
  - RENAL IMPAIRMENT [None]
  - ANXIETY [None]
